FAERS Safety Report 11734407 (Version 11)
Quarter: 2017Q1

REPORT INFORMATION
  Report Type: Spontaneous
  Country: US (occurrence: US)
  Receive Date: 20151113
  Receipt Date: 20170215
  Transmission Date: 20170428
  Serious: Yes (Congenital Anomaly, Other)
  Sender: FDA-Public Use
  Company Number: PHEH2015US023285

PATIENT
  Sex: Male

DRUGS (2)
  1. ONDANSETRON. [Suspect]
     Active Substance: ONDANSETRON
     Indication: FOETAL EXPOSURE DURING PREGNANCY
     Dosage: MOTHER DOSE: 8 MG, PRN
     Route: 064
  2. ZOFRAN [Suspect]
     Active Substance: ONDANSETRON HYDROCHLORIDE
     Indication: FOETAL EXPOSURE DURING PREGNANCY
     Route: 064

REACTIONS (14)
  - Foetal exposure during pregnancy [Unknown]
  - Emotional distress [Unknown]
  - Ear disorder [Unknown]
  - Anhedonia [Unknown]
  - Upper respiratory tract infection [Unknown]
  - Anxiety [Unknown]
  - Congenital anomaly [Unknown]
  - Eating disorder [Unknown]
  - Otitis media [Unknown]
  - Cleft palate [Unknown]
  - Injury [Unknown]
  - Rhinorrhoea [Unknown]
  - Rhinitis [Unknown]
  - Pain [Unknown]
